FAERS Safety Report 9665004 (Version 3)
Quarter: 2014Q3

REPORT INFORMATION
  Report Type: Spontaneous
  Country: US (occurrence: US)
  Receive Date: 20131101
  Receipt Date: 20140815
  Transmission Date: 20150326
  Serious: Yes (Hospitalization, Other)
  Sender: FDA-Public Use
  Company Number: US-009507513-1310USA013237

PATIENT
  Sex: Female
  Weight: 81.8 kg

DRUGS (1)
  1. NUVARING [Suspect]
     Active Substance: ETHINYL ESTRADIOL\ETONOGESTREL
     Indication: CONTRACEPTION
     Dosage: UNK, Q3W
     Route: 067
     Dates: start: 2007, end: 20100128

REACTIONS (8)
  - Vulvovaginitis trichomonal [Unknown]
  - Chest pain [Unknown]
  - Palpitations [Unknown]
  - Skin discolouration [Unknown]
  - Chlamydial infection [Unknown]
  - Pulmonary embolism [Unknown]
  - Gonorrhoea [Unknown]
  - Pulmonary embolism [Unknown]

NARRATIVE: CASE EVENT DATE: 200911
